FAERS Safety Report 4481042-7 (Version None)
Quarter: 2004Q4

REPORT INFORMATION
  Report Type: 
  Country: None (occurrence: None)
  Receive Date: 20041019
  Receipt Date: 20041013
  Transmission Date: 20050328
  Serious: Yes (Disabling)
  Sender: FDA-Public Use
  Company Number: HQWYE127118MAR03

PATIENT
  Sex: Female

DRUGS (4)
  1. DIMETAPP [Suspect]
     Dosage: ORAL
     Route: 048
     Dates: start: 20000701
  2. ALKA-SELTZER PLUS (ACETYLSALICYLIC /CHLORPHENAMINE MALEATE/PHENYLPROPA [Suspect]
     Dosage: ORAL
     Route: 048
     Dates: start: 20000701
  3. ALKA-SELTZER PLUS COLD (ACETYLSALICYLIC ACID/CHLORPHENAMINE MALEATE/PH [Suspect]
     Dosage: ORAL
     Route: 048
     Dates: start: 20000701
  4. DIMETAPP [Suspect]
     Dosage: ORAL
     Route: 048
     Dates: start: 20000701

REACTIONS (1)
  - HAEMORRHAGIC STROKE [None]
